FAERS Safety Report 9993863 (Version 1)
Quarter: 2014Q1

REPORT INFORMATION
  Report Type: Spontaneous
  Country: US (occurrence: US)
  Receive Date: 20140310
  Receipt Date: 20140310
  Transmission Date: 20141002
  Serious: No
  Sender: FDA-Public Use
  Company Number: US-AMGEN-USASP2013038567

PATIENT
  Age: 64 Year
  Sex: Male

DRUGS (2)
  1. SENSIPAR [Suspect]
     Indication: HYPERPARATHYROIDISM SECONDARY
     Dosage: 30 MG, QD
     Dates: start: 2008
  2. SENSIPAR [Suspect]
     Indication: RENAL FAILURE CHRONIC

REACTIONS (3)
  - Chest discomfort [Unknown]
  - Dyspnoea exertional [Unknown]
  - Myalgia [Recovering/Resolving]
